FAERS Safety Report 15990674 (Version 1)
Quarter: 2019Q1

REPORT INFORMATION
  Report Type: Spontaneous
  Country: US (occurrence: US)
  Receive Date: 20190221
  Receipt Date: 20190221
  Transmission Date: 20190418
  Serious: Yes (Other)
  Sender: FDA-Public Use
  Company Number: US-BAYER-2019-036450

PATIENT
  Age: 63 Year
  Sex: Female

DRUGS (17)
  1. TOCOPHEROL [Concomitant]
     Active Substance: TOCOPHEROL
  2. RELAFEN [Concomitant]
     Active Substance: NABUMETONE
  3. CARISOPRODOL. [Concomitant]
     Active Substance: CARISOPRODOL
  4. PREMPRO [Suspect]
     Active Substance: ESTROGENS, CONJUGATED\MEDROXYPROGESTERONE ACETATE
     Indication: HORMONE REPLACEMENT THERAPY
     Dosage: UNK
     Route: 048
     Dates: start: 20010112, end: 20020530
  5. CYCLOBENZAPRINE. [Concomitant]
     Active Substance: CYCLOBENZAPRINE
  6. PROMETRIUM [Suspect]
     Active Substance: PROGESTERONE
     Indication: HORMONE REPLACEMENT THERAPY
     Dosage: UNK
     Route: 048
     Dates: start: 19990309, end: 19991106
  7. PROMETRIUM [Suspect]
     Active Substance: PROGESTERONE
     Indication: HORMONE REPLACEMENT THERAPY
     Dosage: UNK
     Route: 048
     Dates: start: 20000208, end: 20010101
  8. CELEBREX [Concomitant]
     Active Substance: CELECOXIB
  9. EVISTA [Concomitant]
     Active Substance: RALOXIFENE HYDROCHLORIDE
  10. TRIMOX [AMOXICILLIN TRIHYDRATE] [Concomitant]
  11. HYDROCODONE [Concomitant]
     Active Substance: HYDROCODONE
  12. RENOVA [TRETINOIN] [Concomitant]
  13. CLIMARA [Suspect]
     Active Substance: ESTRADIOL
     Indication: HORMONE REPLACEMENT THERAPY
     Dosage: UNK
     Route: 062
     Dates: start: 19990125, end: 20010101
  14. BUSPIRONE [Concomitant]
     Active Substance: BUSPIRONE HYDROCHLORIDE
  15. LAC-HYDRIN [Concomitant]
     Active Substance: AMMONIUM LACTATE
  16. MULTIVITAMINS [VITAMINS NOS] [Concomitant]
     Active Substance: VITAMINS
  17. NULYTELY [Concomitant]
     Active Substance: POLYETHYLENE GLYCOL 3350\POTASSIUM CHLORIDE\SODIUM BICARBONATE\SODIUM CHLORIDE

REACTIONS (4)
  - Arteriosclerosis coronary artery [None]
  - Metrorrhagia [None]
  - Ischaemic stroke [None]
  - Depression [None]
